FAERS Safety Report 16790251 (Version 1)
Quarter: 2019Q3

REPORT INFORMATION
  Report Type: Spontaneous
  Country: FR (occurrence: FR)
  Receive Date: 20190910
  Receipt Date: 20190910
  Transmission Date: 20191005
  Serious: Yes (Hospitalization)
  Sender: FDA-Public Use
  Company Number: PHHY2019FR205941

PATIENT
  Age: 42 Year
  Sex: Female

DRUGS (1)
  1. PARACETAMOL [Suspect]
     Active Substance: ACETAMINOPHEN
     Indication: SUICIDE ATTEMPT
     Dosage: 6 DF, ONCE/SINGLE (TOTAL)
     Route: 048
     Dates: start: 20190108, end: 20190108

REACTIONS (9)
  - Somnolence [Recovered/Resolved]
  - Gamma-glutamyltransferase increased [Recovered/Resolved]
  - Psychomotor retardation [Recovered/Resolved]
  - Loss of consciousness [Recovered/Resolved]
  - Headache [Recovered/Resolved]
  - Hypotonia [Recovered/Resolved]
  - Hypertransaminasaemia [Recovered/Resolved]
  - Toxicity to various agents [Recovered/Resolved]
  - Malaise [Recovered/Resolved]

NARRATIVE: CASE EVENT DATE: 20190108
